FAERS Safety Report 21989488 (Version 1)
Quarter: 2023Q1

REPORT INFORMATION
  Report Type: Spontaneous
  Country: JP (occurrence: JP)
  Receive Date: 20230214
  Receipt Date: 20230214
  Transmission Date: 20230418
  Serious: Yes (Other)
  Sender: FDA-Public Use
  Company Number: JP-TEVA-2023-JP-2855860

PATIENT

DRUGS (3)
  1. CARBOPLATIN [Suspect]
     Active Substance: CARBOPLATIN
     Indication: Small cell lung cancer extensive stage
     Dosage: ON DAY 1 OF EACH CYCLE SCHEDULED FOR 4 CYCLES
     Route: 042
  2. ATEZOLIZUMAB [Suspect]
     Active Substance: ATEZOLIZUMAB
     Indication: Small cell lung cancer extensive stage
     Dosage: 1200 MG, ON DAY 1 OF EACH CYCLE SCHEDULED FOR 4 CYCLES FOLLOWED BY A SCHEDULED CYCLICAL
     Route: 042
  3. ETOPOSIDE [Suspect]
     Active Substance: ETOPOSIDE
     Indication: Small cell lung cancer extensive stage
     Dosage: ON DAYS 1 THROUGH 3 OF EACH CYCLE SCHEDULED FOR 4 CYCLES
     Route: 042

REACTIONS (1)
  - Pneumonia bacterial [Unknown]
